FAERS Safety Report 21192886 (Version 1)
Quarter: 2022Q3

REPORT INFORMATION
  Report Type: Spontaneous
  Country: US (occurrence: US)
  Receive Date: 20220810
  Receipt Date: 20220810
  Transmission Date: 20221026
  Serious: No
  Sender: FDA-Public Use
  Company Number: US-BRISTOL-MYERS SQUIBB COMPANY-2022-087564

PATIENT
  Age: 69 Year
  Sex: Female
  Weight: 60 kg

DRUGS (1)
  1. REVLIMID [Suspect]
     Active Substance: LENALIDOMIDE
     Indication: Plasma cell myeloma
     Dosage: 10 MG, DAILY FOR 21 DAYS
     Route: 048
     Dates: start: 20170202

REACTIONS (1)
  - COVID-19 [Recovering/Resolving]
